FAERS Safety Report 21560392 (Version 4)
Quarter: 2023Q1

REPORT INFORMATION
  Report Type: Spontaneous
  Country: US (occurrence: US)
  Receive Date: 20221107
  Receipt Date: 20230223
  Transmission Date: 20230417
  Serious: No
  Sender: FDA-Public Use
  Company Number: US-002147023-NVSC2022US248873

PATIENT
  Sex: Female

DRUGS (2)
  1. VIVELLE-DOT [Suspect]
     Active Substance: ESTRADIOL
     Indication: Product used for unknown indication
     Dosage: 5 %, BID (2X A WEEK)
     Route: 065
     Dates: start: 20210630
  2. PROGESTERONE [Concomitant]
     Active Substance: PROGESTERONE
     Indication: Product used for unknown indication
     Dosage: 1000 MG, QD (ONCE A NIGHT)
     Route: 065

REACTIONS (3)
  - Intermenstrual bleeding [Unknown]
  - Product adhesion issue [Unknown]
  - Product quality issue [Unknown]
